FAERS Safety Report 8881019 (Version 2)
Quarter: 2012Q4

REPORT INFORMATION
  Report Type: 
  Country: AT (occurrence: AT)
  Receive Date: 20121101
  Receipt Date: 20121108
  Transmission Date: 20130627
  Serious: Yes (Other)
  Sender: FDA-Public Use
  Company Number: AT-WATSON-2012-18255

PATIENT
  Age: 51 Year
  Sex: Female

DRUGS (11)
  1. SIMVASTATIN (UNKNOWN) [Suspect]
     Dosage: 20 mg, UNK
     Route: 065
     Dates: start: 199910
  2. SIMVASTATIN (UNKNOWN) [Suspect]
     Dosage: 10 mg, daily
     Route: 065
     Dates: start: 199906, end: 199910
  3. FUSIDIC ACID (UNKNOWN) [Suspect]
     Indication: SOFT TISSUE INFECTION
     Dosage: UNK
     Route: 065
  4. FUSIDIC ACID (UNKNOWN) [Suspect]
     Indication: OSTEOMYELITIS
  5. TACROLIMUS [Suspect]
     Indication: IMMUNOSUPPRESSION
     Dosage: 1-2 mg, daily
     Route: 065
  6. PREDNISOLONE [Concomitant]
     Indication: PRODUCT USED FOR UNKNOWN INDICATION
     Dosage: 5 mg, unknown
     Route: 065
  7. AZATHIOPRINE [Concomitant]
     Indication: PRODUCT USED FOR UNKNOWN INDICATION
     Dosage: 75 mg, unknown
     Route: 065
  8. FELODIPINE [Concomitant]
     Indication: PRODUCT USED FOR UNKNOWN INDICATION
     Dosage: 10 mg, unknown
     Route: 065
  9. CITALOPRAM [Concomitant]
     Indication: PRODUCT USED FOR UNKNOWN INDICATION
     Dosage: 20 mg, unknown
     Route: 065
  10. ASPIRIN [Concomitant]
     Indication: PRODUCT USED FOR UNKNOWN INDICATION
     Dosage: 100 mg, unknown
     Route: 065
  11. INSULIN [Concomitant]
     Indication: PRODUCT USED FOR UNKNOWN INDICATION
     Dosage: UNK, unknown
     Route: 065

REACTIONS (2)
  - Rhabdomyolysis [Recovered/Resolved]
  - Drug interaction [Not Recovered/Not Resolved]
